FAERS Safety Report 8014556-3 (Version None)
Quarter: 2011Q4

REPORT INFORMATION
  Report Type: 
  Country: None (occurrence: None)
  Receive Date: 20111229
  Receipt Date: 20111223
  Transmission Date: 20120403
  Serious: Yes (Other)
  Sender: FDA-Public Use
  Company Number: US-BRISTOL-MYERS SQUIBB COMPANY-16163925

PATIENT
  Age: 73 Year
  Sex: Male

DRUGS (5)
  1. LIPITOR [Concomitant]
     Route: 048
  2. IMODIUM [Concomitant]
     Dosage: 1 DF: 1 TAB
  3. QUINAPRIL [Concomitant]
     Route: 048
  4. LOMOTIL [Concomitant]
     Dosage: 1 DF: TAB
  5. YERVOY [Suspect]
     Indication: METASTATIC MALIGNANT MELANOMA
     Dosage: RECEIVED 2 DOSES ALSO EXP DT:JAN2014 .245 MG EVERY 3 WEEKS
     Route: 042
     Dates: start: 20110902

REACTIONS (1)
  - TREMOR [None]
